FAERS Safety Report 10528438 (Version 1)
Quarter: 2014Q4

REPORT INFORMATION
  Report Type: Spontaneous
  Country: US (occurrence: None)
  Receive Date: 20141016
  Receipt Date: 20141016
  Transmission Date: 20150528
  Serious: Yes (Hospitalization)
  Sender: FDA-Public Use
  Company Number: None

PATIENT
  Age: 31 Year
  Sex: Male
  Weight: 92.6 kg

DRUGS (2)
  1. IBUPROFEN. [Suspect]
     Active Substance: IBUPROFEN
     Indication: ACUTE PRERENAL FAILURE
     Route: 048
     Dates: start: 20140715, end: 20140810
  2. NAPROXEN. [Suspect]
     Active Substance: NAPROXEN
     Indication: TUBULOINTERSTITIAL NEPHRITIS
     Dates: start: 20140809, end: 20140809

REACTIONS (1)
  - Acute kidney injury [None]

NARRATIVE: CASE EVENT DATE: 20140808
